FAERS Safety Report 7965778 (Version 3)
Quarter: 2013Q1

REPORT INFORMATION
  Report Type: Report from Study
  Country: US (occurrence: US)
  Receive Date: 20110530
  Receipt Date: 20130208
  Transmission Date: 20140127
  Serious: Yes (Hospitalization)
  Sender: FDA-Public Use
  Company Number: US-AMGEN-USACT2011025487

PATIENT
  Age: 63 Year
  Sex: Male

DRUGS (17)
  1. DARBEPOETIN ALFA [Suspect]
     Indication: CARDIAC FAILURE
     Dosage: UNK UNK, Q2WK
     Route: 058
     Dates: start: 20110425, end: 20110518
  2. AMIODARONE [Concomitant]
     Dosage: 200 MG, UNK
     Route: 048
  3. CLOPIDOGREL [Concomitant]
     Dosage: 25 MG, QD
     Route: 048
  4. ASA [Concomitant]
     Dosage: 325 MG, QD
     Route: 048
  5. CARVEDILOL [Concomitant]
     Dosage: 25 MG, BID
     Route: 048
  6. SIMVASTATIN [Concomitant]
     Dosage: 80 MG, QD
     Route: 048
  7. LISINOPRIL [Concomitant]
     Dosage: 20 MG, QD
     Route: 048
  8. NPH INSULIN [Concomitant]
     Dosage: UNK UNK, BID
     Route: 058
  9. MUPIROCIN [Concomitant]
     Dosage: UNK UNK, BID
     Route: 045
  10. TRAVOPROST [Concomitant]
     Dosage: UNK UNK, QD
     Route: 047
  11. FLUOROURACIL [Concomitant]
     Dosage: UNK UNK, BID
     Route: 061
  12. DESONIDE [Concomitant]
     Dosage: UNK UNK, BID
     Route: 061
  13. HYDROPHILIC [Concomitant]
     Dosage: UNK UNK, QD
     Route: 061
  14. LASIX [Concomitant]
     Dosage: 80 MG, QD
     Route: 048
     Dates: start: 20110502
  15. ENOXAPARIN [Concomitant]
     Dosage: 40 MG, QD
     Route: 058
     Dates: start: 20110502, end: 20110502
  16. LACTULOSE [Concomitant]
     Dosage: 306 UNK, UNK
     Route: 048
     Dates: start: 20110502, end: 20110502
  17. LOSARTAN [Concomitant]
     Dosage: 50 MG, QD
     Route: 048
     Dates: start: 20110502

REACTIONS (1)
  - Ventricular tachycardia [Recovered/Resolved]
